FAERS Safety Report 25393742 (Version 1)
Quarter: 2025Q2

REPORT INFORMATION
  Report Type: Spontaneous
  Country: US (occurrence: US)
  Receive Date: 20250604
  Receipt Date: 20250604
  Transmission Date: 20250716
  Serious: Yes (Other)
  Sender: ACCORD
  Company Number: US-MLMSERVICE-20250523-PI518050-00249-2

PATIENT
  Age: 66 Year
  Sex: Male

DRUGS (12)
  1. FLUOROURACIL [Suspect]
     Active Substance: FLUOROURACIL
     Indication: Gastric cancer stage IV
     Dosage: EVERY 2 WEEKS FOR A TOTAL OF NINE CYCLES AND EVERY 4 WEEKS, FOR AN ADDITIONAL SIX CYCLES
  2. OXALIPLATIN [Suspect]
     Active Substance: OXALIPLATIN
     Indication: Gastric cancer stage IV
     Dosage: FOR A TOTAL OF NINE CYCLES
  3. TRASTUZUMAB [Suspect]
     Active Substance: TRASTUZUMAB
     Indication: Gastric cancer stage IV
     Dosage: 6 MG/KG INTRAVENOUSLY EVERY 3 WEEKS AFTER AN INITIAL LOADING DOSE OF 8 MG/KG; EVERY
  4. LEUCOVORIN [Suspect]
     Active Substance: LEUCOVORIN\LEUCOVORIN CALCIUM
     Indication: Gastric cancer stage IV
     Dosage: EVERY 2 WEEKS FOR A TOTAL OF NINE CYCLES AND EVERY 4 WEEKS, FOR AN ADDITIONAL SIX CYCLES
  5. PEMBROLIZUMAB [Suspect]
     Active Substance: PEMBROLIZUMAB
     Indication: Gastric cancer stage IV
     Dosage: FOR A TOTAL OF NINE CYCLES AND FOR AN ADDITIONAL SIX CYCLES
  6. PEMBROLIZUMAB [Suspect]
     Active Substance: PEMBROLIZUMAB
     Indication: Metastases to peritoneum
     Dosage: FOR A TOTAL OF NINE CYCLES AND FOR AN ADDITIONAL SIX CYCLES
  7. OXALIPLATIN [Suspect]
     Active Substance: OXALIPLATIN
     Indication: Metastases to peritoneum
     Dosage: FOR A TOTAL OF NINE CYCLES
  8. FLUOROURACIL [Suspect]
     Active Substance: FLUOROURACIL
     Indication: Metastases to peritoneum
     Dosage: EVERY 2 WEEKS FOR A TOTAL OF NINE CYCLES AND EVERY 4 WEEKS, FOR AN ADDITIONAL SIX CYCLES
  9. LEUCOVORIN [Suspect]
     Active Substance: LEUCOVORIN\LEUCOVORIN CALCIUM
     Indication: Metastases to peritoneum
     Dosage: EVERY 2 WEEKS FOR A TOTAL OF NINE CYCLES AND EVERY 4 WEEKS, FOR AN ADDITIONAL SIX CYCLES
  10. TRASTUZUMAB [Suspect]
     Active Substance: TRASTUZUMAB
     Indication: Metastases to peritoneum
     Dosage: 6 MG/KG INTRAVENOUSLY EVERY 3 WEEKS AFTER AN INITIAL LOADING DOSE
  11. TRASTUZUMAB [Suspect]
     Active Substance: TRASTUZUMAB
     Indication: Gastric cancer stage IV
     Dosage: 6 MG/KG INTRAVENOUSLY EVERY 3 WEEKS AFTER AN INITIAL LOADING DOSE OF
  12. TRASTUZUMAB [Suspect]
     Active Substance: TRASTUZUMAB
     Indication: Metastases to peritoneum
     Dosage: 6 MG/KG INTRAVENOUSLY EVERY 3 WEEKS AFTER AN INITIAL LOADING DOSE OF

REACTIONS (2)
  - Neuropathy peripheral [Unknown]
  - Off label use [Unknown]
